FAERS Safety Report 16891741 (Version 1)
Quarter: 2019Q4

REPORT INFORMATION
  Report Type: Report from Study
  Country: US (occurrence: US)
  Receive Date: 20191007
  Receipt Date: 20191007
  Transmission Date: 20200122
  Serious: No
  Sender: FDA-Public Use
  Company Number: US-INCYTE CORPORATION-2019IN009600

PATIENT

DRUGS (1)
  1. JAKAFI [Suspect]
     Active Substance: RUXOLITINIB
     Indication: PLATELET COUNT INCREASED
     Dosage: 20 MILLIGRAM, BID (ONCE IN THE MORNING AND ONE IN THE EVENING)
     Route: 048

REACTIONS (2)
  - Blood glucose increased [Unknown]
  - Off label use [Unknown]
